FAERS Safety Report 5784285-5 (Version None)
Quarter: 2008Q2

REPORT INFORMATION
  Report Type: 
  Country: None (occurrence: None)
  Receive Date: 20080620
  Receipt Date: 20080620
  Transmission Date: 20081010
  Serious: No
  Sender: FDA-Public Use
  Company Number: None

PATIENT
  Age: 59 Year
  Sex: Male
  Weight: 95.2554 kg

DRUGS (1)
  1. LEVAQUIN [Suspect]
     Indication: PROSTATE INFECTION
     Dosage: 500 MG 1 PER DAY PO
     Route: 048
     Dates: start: 20080602, end: 20080615

REACTIONS (3)
  - ARTHRALGIA [None]
  - JOINT SWELLING [None]
  - TENDON PAIN [None]
